FAERS Safety Report 10677137 (Version 2)
Quarter: 2015Q1

REPORT INFORMATION
  Report Type: Spontaneous
  Country: RU (occurrence: RU)
  Receive Date: 20141226
  Receipt Date: 20150123
  Transmission Date: 20150720
  Serious: Yes (Other)
  Sender: FDA-Public Use
  Company Number: RU-BAYER-2014-189668

PATIENT
  Age: 24 Year
  Sex: Female

DRUGS (1)
  1. QLAIRA [Suspect]
     Active Substance: DIENOGEST\ESTRADIOL VALERATE
     Indication: UTERINE CYST
     Dosage: UNK
     Route: 048
     Dates: start: 201407, end: 201409

REACTIONS (3)
  - Alopecia [None]
  - Product use issue [None]
  - Acne [Not Recovered/Not Resolved]

NARRATIVE: CASE EVENT DATE: 201409
